FAERS Safety Report 9034904 (Version 1)
Quarter: 2013Q1

REPORT INFORMATION
  Report Type: Report from Study
  Country: US (occurrence: US)
  Receive Date: 20130129
  Receipt Date: 20130129
  Transmission Date: 20140127
  Serious: No
  Sender: FDA-Public Use
  Company Number: US-ABBOTT-12P-163-0894901-00

PATIENT
  Age: 36 Year
  Sex: Male

DRUGS (7)
  1. HUMIRA 40 MG/0.8 ML PEN [Suspect]
     Indication: CROHN^S DISEASE
     Dates: start: 20120116
  2. PAXIL [Concomitant]
     Indication: BIPOLAR DISORDER
     Dosage: 37.5 MG DAILY
     Route: 048
  3. ABILIFY [Concomitant]
     Indication: BIPOLAR DISORDER
     Dosage: 10 MG DAILY
     Route: 048
  4. DIOVAN [Concomitant]
     Indication: CARDIAC DISORDER
     Dosage: 80 MG DAILY
     Route: 048
  5. TRAZODONE [Concomitant]
     Indication: INSOMNIA
     Dosage: 100 MG DAILY PRN
     Route: 048
  6. PROMETHAZINE [Concomitant]
     Indication: NAUSEA
     Dosage: 6.25MG/5MS, 1 TEASPOON TID PRN
     Route: 048
  7. POTASSIUM [Concomitant]
     Indication: MINERAL SUPPLEMENTATION
     Dosage: 595 MG DAILY
     Route: 048

REACTIONS (1)
  - Injection site pain [Recovered/Resolved]
